FAERS Safety Report 8565296 (Version 4)
Quarter: 2012Q4

REPORT INFORMATION
  Report Type: 
  Country: US (occurrence: US)
  Receive Date: 20120516
  Receipt Date: 20121018
  Transmission Date: 20130627
  Serious: Yes (Other)
  Sender: FDA-Public Use
  Company Number: US-MERCK-1111USA02494

PATIENT
  Age: 57 None

DRUGS (5)
  1. FOSAMAX [Suspect]
     Indication: OSTEOPOROSIS PROPHYLAXIS
     Dosage: 10 mg, qd
     Route: 048
     Dates: start: 19980508, end: 20000531
  2. FOSAMAX [Suspect]
     Dosage: 35 mg, UNK
     Route: 048
     Dates: start: 20070904
  3. BONIVA [Suspect]
     Dosage: 150 mg, UNK
     Route: 048
     Dates: start: 200612, end: 20070807
  4. BONIVA [Suspect]
     Dosage: 35 mg, UNK
     Route: 048
     Dates: start: 20070907, end: 200806
  5. FOSAMAX [Suspect]

REACTIONS (30)
  - Temporomandibular joint syndrome [Unknown]
  - Dental caries [Unknown]
  - Osteopenia [Unknown]
  - Ovarian failure [Unknown]
  - Gallbladder disorder [Unknown]
  - Squamous cell carcinoma of skin [Unknown]
  - Malignant tumour excision [Unknown]
  - Osteonecrosis of jaw [Unknown]
  - Tooth disorder [Unknown]
  - Device breakage [Unknown]
  - Blood cholesterol increased [Unknown]
  - Osteoporosis [Unknown]
  - Blood disorder [Unknown]
  - Hypertonic bladder [Unknown]
  - Anxiety [Unknown]
  - Device failure [Unknown]
  - Bruxism [Unknown]
  - Periodontal disease [Not Recovered/Not Resolved]
  - Poor personal hygiene [Unknown]
  - Traumatic occlusion [Unknown]
  - Dental alveolar anomaly [Unknown]
  - Tooth crowding [Unknown]
  - Tooth loss [Unknown]
  - Tooth disorder [Unknown]
  - Hormone level abnormal [Unknown]
  - Glaucoma [Unknown]
  - Increased tendency to bruise [Unknown]
  - Ear disorder [Unknown]
  - Gingival recession [Unknown]
  - Bone loss [Unknown]
